FAERS Safety Report 25324566 (Version 1)
Quarter: 2025Q2

REPORT INFORMATION
  Report Type: Report from Study
  Country: US (occurrence: US)
  Receive Date: 20250516
  Receipt Date: 20250516
  Transmission Date: 20250717
  Serious: Yes (Other)
  Sender: ABBVIE
  Company Number: US-ABBVIE-6090709

PATIENT
  Age: 76 Year
  Sex: Female

DRUGS (2)
  1. HUMIRA [Suspect]
     Active Substance: ADALIMUMAB
     Indication: Rheumatoid arthritis
     Route: 058
     Dates: start: 20240301
  2. HUMIRA [Suspect]
     Active Substance: ADALIMUMAB
     Route: 058
     Dates: start: 20220101

REACTIONS (5)
  - Breast cancer female [Recovering/Resolving]
  - Rheumatoid arthritis [Recovering/Resolving]
  - Procedural pain [Unknown]
  - Nodule [Unknown]
  - Primary breast lymphoma [Recovering/Resolving]

NARRATIVE: CASE EVENT DATE: 20240101
